FAERS Safety Report 5722611-3 (Version None)
Quarter: 2008Q2

REPORT INFORMATION
  Report Type: 
  Country: None (occurrence: None)
  Receive Date: 20080429
  Receipt Date: 20071004
  Transmission Date: 20081010
  Serious: No
  Sender: FDA-Public Use
  Company Number: US-ASTRAZENECA-2007UW23216

PATIENT
  Age: 79 Year
  Sex: Male
  Weight: 77.1 kg

DRUGS (4)
  1. NEXIUM [Suspect]
     Indication: GASTROOESOPHAGEAL REFLUX DISEASE
     Dates: start: 20070801
  2. CALCIUM [Concomitant]
  3. CENTRUM SILVER [Concomitant]
  4. LIPITOR [Concomitant]

REACTIONS (1)
  - CHEST DISCOMFORT [None]
